FAERS Safety Report 11910353 (Version 4)
Quarter: 2016Q2

REPORT INFORMATION
  Report Type: Spontaneous
  Country: US (occurrence: US)
  Receive Date: 20160112
  Receipt Date: 20160415
  Transmission Date: 20160815
  Serious: Yes (Other)
  Sender: FDA-Public Use
  Company Number: US-GLAXOSMITHKLINE-US2016002761

PATIENT
  Age: 64 Year
  Sex: Female

DRUGS (7)
  1. MEPRON [Suspect]
     Active Substance: ATOVAQUONE
     Indication: BABESIOSIS
     Dosage: 750 MG/5 ML
     Route: 048
     Dates: start: 20151116, end: 20160104
  2. MEPRON [Suspect]
     Active Substance: ATOVAQUONE
     Indication: LYME DISEASE
  3. CEFUROXIME AXETIL. [Concomitant]
     Active Substance: CEFUROXIME AXETIL
  4. NYSTATIN. [Concomitant]
     Active Substance: NYSTATIN
  5. GABAPENTIN. [Concomitant]
     Active Substance: GABAPENTIN
  6. MEPRON [Suspect]
     Active Substance: ATOVAQUONE
     Indication: BARTONELLOSIS
     Dosage: UNK
     Dates: start: 20160112
  7. AZITHROMYCIN HYDRATE [Concomitant]
     Active Substance: AZITHROMYCIN DIHYDRATE

REACTIONS (9)
  - Lyme disease [Unknown]
  - Pain [Recovering/Resolving]
  - Overdose [Unknown]
  - Babesiosis [Unknown]
  - Condition aggravated [Unknown]
  - Malaise [Not Recovered/Not Resolved]
  - Drug dose omission [Recovered/Resolved]
  - Hypoaesthesia [Recovering/Resolving]
  - Incorrect product storage [Unknown]

NARRATIVE: CASE EVENT DATE: 2015
